FAERS Safety Report 5298869-4 (Version None)
Quarter: 2007Q2

REPORT INFORMATION
  Report Type: 
  Country: None (occurrence: None)
  Receive Date: 20070417
  Receipt Date: 20070412
  Transmission Date: 20071010
  Serious: Yes (Life-Threatening, Other)
  Sender: FDA-Public Use
  Company Number: CAWYE444412APR07

PATIENT
  Sex: Female
  Weight: 68.3 kg

DRUGS (1)
  1. RAPAMUNE [Suspect]
     Indication: RENAL TRANSPLANT
     Route: 048
     Dates: start: 20060213, end: 20070212

REACTIONS (1)
  - PERICARDIAL EFFUSION [None]
